FAERS Safety Report 5839190-2 (Version None)
Quarter: 2008Q3

REPORT INFORMATION
  Report Type: 
  Country: None (occurrence: None)
  Receive Date: 20080808
  Receipt Date: 20080731
  Transmission Date: 20090109
  Serious: Yes (Other)
  Sender: FDA-Public Use
  Company Number: US-MERCK-0808USA00354

PATIENT
  Age: 5 Year
  Sex: Male

DRUGS (5)
  1. SINGULAIR [Suspect]
     Indication: ASTHMA
     Route: 048
     Dates: start: 20050101
  2. SINGULAIR [Suspect]
     Route: 048
     Dates: start: 20080420, end: 20080421
  3. SINGULAIR [Suspect]
     Indication: RHINITIS ALLERGIC
     Route: 048
     Dates: start: 20050101
  4. SINGULAIR [Suspect]
     Route: 048
     Dates: start: 20080420, end: 20080421
  5. ZYRTEC [Concomitant]
     Route: 065

REACTIONS (9)
  - ABNORMAL BEHAVIOUR [None]
  - AGGRESSION [None]
  - EMOTIONAL DISORDER [None]
  - HOMICIDAL IDEATION [None]
  - INTENTIONAL SELF-INJURY [None]
  - MANIA [None]
  - MOOD SWINGS [None]
  - PHYSICAL ASSAULT [None]
  - SLEEP DISORDER [None]
